FAERS Safety Report 26005620 (Version 1)
Quarter: 2025Q4

REPORT INFORMATION
  Report Type: Spontaneous
  Country: EU (occurrence: None)
  Receive Date: 20251106
  Receipt Date: 20251106
  Transmission Date: 20260117
  Serious: Yes (Other)
  Sender: ORION
  Company Number: None

PATIENT
  Age: 22 Year
  Sex: Male

DRUGS (3)
  1. METHOTREXATE SODIUM [Suspect]
     Active Substance: METHOTREXATE SODIUM
     Indication: Prophylaxis
     Dates: start: 202104
  2. METHOTREXATE SODIUM [Suspect]
     Active Substance: METHOTREXATE SODIUM
     Dosage: DRUG WAS ON A BREAK FOR A COUPLE OF YEARS, BUT WAS REINTRODUCED TO MEDICATION LIST IN MAY-2024.
     Dates: start: 202405, end: 20250117
  3. INFLIXIMAB [Concomitant]
     Active Substance: INFLIXIMAB
     Indication: Colitis ulcerative
     Dosage: 120 MG 1 UNIT ONCE EVERY 2 WEEKS
     Dates: start: 202204, end: 20250117

REACTIONS (1)
  - Hodgkin^s disease stage III [Recovered/Resolved]

NARRATIVE: CASE EVENT DATE: 20241101
